FAERS Safety Report 9189146 (Version 2)
Quarter: 2013Q2

REPORT INFORMATION
  Report Type: Report from Study
  Country: DE (occurrence: DE)
  Receive Date: 20130326
  Receipt Date: 20130621
  Transmission Date: 20140414
  Serious: Yes (Hospitalization)
  Sender: FDA-Public Use
  Company Number: DE-ELI_LILLY_AND_COMPANY-DE201303004671

PATIENT
  Sex: Female

DRUGS (5)
  1. TERIPARATIDE [Suspect]
     Indication: OSTEOPOROSIS
     Dosage: UNK UNK, QD
     Route: 065
     Dates: start: 20120626
  2. CORTISONE [Concomitant]
  3. MTX [Concomitant]
  4. OPTRUMA [Concomitant]
  5. RAMILICH [Concomitant]

REACTIONS (2)
  - Cholelithiasis [Recovered/Resolved]
  - Laboratory test abnormal [Recovered/Resolved]
